FAERS Safety Report 8135137-7 (Version None)
Quarter: 2012Q1

REPORT INFORMATION
  Report Type: 
  Country: None (occurrence: None)
  Receive Date: 20120214
  Receipt Date: 20120206
  Transmission Date: 20120608
  Serious: Yes (Hospitalization)
  Sender: FDA-Public Use
  Company Number: JP-US-EMD SERONO, INC.-7111733

PATIENT
  Sex: Female
  Weight: 53 kg

DRUGS (16)
  1. GONAL-F RFF PEN [Suspect]
     Route: 058
     Dates: start: 20111110, end: 20111115
  2. DUPHASTON [Concomitant]
     Indication: PRODUCT USED FOR UNKNOWN INDICATION
     Route: 048
     Dates: start: 20110927, end: 20111010
  3. VECTAN [Concomitant]
     Route: 048
     Dates: start: 20111021, end: 20111103
  4. GONAL-F RFF PEN [Suspect]
     Route: 058
     Dates: start: 20111014, end: 20111018
  5. GONAL-F RFF PEN [Suspect]
     Route: 058
     Dates: start: 20111208, end: 20111213
  6. VECTAN [Concomitant]
     Indication: PRODUCT USED FOR UNKNOWN INDICATION
     Route: 048
     Dates: start: 20110927, end: 20111010
  7. GONAL-F RFF PEN [Suspect]
     Indication: ANOVULATORY CYCLE
     Route: 058
     Dates: start: 20110916, end: 20110924
  8. DUPHASTON [Concomitant]
     Route: 048
     Dates: start: 20111117, end: 20111130
  9. VECTAN [Concomitant]
     Route: 048
     Dates: start: 20111117, end: 20111130
  10. VECTAN [Concomitant]
     Route: 048
     Dates: start: 20111215, end: 20111228
  11. CHORIONIC GONADOTROPIN [Concomitant]
     Dates: start: 20111116, end: 20111116
  12. CHORIONIC GONADOTROPIN [Concomitant]
     Dates: start: 20111214, end: 20111214
  13. DUPHASTON [Concomitant]
     Route: 048
     Dates: start: 20111215, end: 20111228
  14. CHORIONIC GONADOTROPIN [Concomitant]
     Indication: ANOVULATORY CYCLE
     Dates: start: 20110925, end: 20110925
  15. DUPHASTON [Concomitant]
     Route: 048
     Dates: start: 20111021, end: 20111103
  16. CHORIONIC GONADOTROPIN [Concomitant]
     Dates: start: 20111019, end: 20111019

REACTIONS (2)
  - OVARIAN HAEMORRHAGE [None]
  - ABORTION COMPLETE [None]
